FAERS Safety Report 24352107 (Version 1)
Quarter: 2024Q3

REPORT INFORMATION
  Report Type: Report from Study
  Country: US (occurrence: US)
  Receive Date: 20240923
  Receipt Date: 20240923
  Transmission Date: 20241016
  Serious: No
  Sender: ROCHE
  Company Number: US-ROCHE-3135723

PATIENT
  Age: 75 Year
  Sex: Male

DRUGS (2)
  1. HERCEPTIN [Suspect]
     Active Substance: TRASTUZUMAB
     Indication: Rectosigmoid cancer
     Dosage: LOADING DOSE OF 522 MG ONCE EVERY 21 DAYS, MAINTENANCE DOSE OF 414 MG ONCE EVERY 21 DAYS.
     Route: 065
  2. HERCEPTIN [Suspect]
     Active Substance: TRASTUZUMAB
     Indication: Rectal cancer
     Dosage: DATE OF TREATMENT 25/SEP/2023
     Route: 065

REACTIONS (2)
  - Off label use [Unknown]
  - No adverse event [Unknown]
